FAERS Safety Report 9006896 (Version 1)
Quarter: 2013Q1

REPORT INFORMATION
  Report Type: Spontaneous
  Country: US (occurrence: US)
  Receive Date: 20130110
  Receipt Date: 20130110
  Transmission Date: 20140127
  Serious: Yes (Death)
  Sender: FDA-Public Use
  Company Number: US-PFIZER INC-2013007324

PATIENT
  Age: 6 Month
  Sex: Male

DRUGS (1)
  1. AZITHROMYCIN [Suspect]
     Dosage: UNK

REACTIONS (1)
  - Medication error [Fatal]
